FAERS Safety Report 8052954-2 (Version None)
Quarter: 2012Q1

REPORT INFORMATION
  Report Type: 
  Country: None (occurrence: None)
  Receive Date: 20120118
  Receipt Date: 20120109
  Transmission Date: 20120608
  Serious: Yes (Hospitalization, Other)
  Sender: FDA-Public Use
  Company Number: US-BAYER-2010-002288

PATIENT
  Age: 22 Year
  Sex: Female
  Weight: 104.31 kg

DRUGS (3)
  1. TETRACYCLINE [Concomitant]
  2. YAZ [Suspect]
     Indication: ACNE
     Dosage: UNK
     Route: 048
     Dates: start: 20090801, end: 20090901
  3. YAZ [Suspect]
     Indication: PREMENSTRUAL SYNDROME

REACTIONS (3)
  - PULMONARY EMBOLISM [None]
  - INJURY [None]
  - DEEP VEIN THROMBOSIS [None]
